FAERS Safety Report 6652472-X (Version None)
Quarter: 2010Q1

REPORT INFORMATION
  Report Type: 
  Country: None (occurrence: None)
  Receive Date: 20100323
  Receipt Date: 20100315
  Transmission Date: 20100710
  Serious: Yes (Other)
  Sender: FDA-Public Use
  Company Number: 2010SP007924

PATIENT
  Age: 42 Year
  Sex: Female

DRUGS (12)
  1. MIRTAZAPINE [Suspect]
     Indication: DEPRESSED MOOD
     Dosage: 15 MG;QD;PO, 30 MG;QD;PO
     Route: 048
     Dates: start: 20091104, end: 20091112
  2. MIRTAZAPINE [Suspect]
     Indication: INSOMNIA
     Dosage: 15 MG;QD;PO, 30 MG;QD;PO
     Route: 048
     Dates: start: 20091104, end: 20091112
  3. MIRTAZAPINE [Suspect]
     Indication: DEPRESSED MOOD
     Dosage: 15 MG;QD;PO, 30 MG;QD;PO
     Route: 048
     Dates: start: 20091113
  4. MIRTAZAPINE [Suspect]
     Indication: INSOMNIA
     Dosage: 15 MG;QD;PO, 30 MG;QD;PO
     Route: 048
     Dates: start: 20091113
  5. TOLEDOMIN (MILNACIPRAN HYDROCHLORIDE) [Suspect]
     Indication: DEPRESSED MOOD
     Dosage: 75 MG;QD;PO, 50 MG;QD;PO
     Route: 048
     Dates: end: 20091210
  6. TOLEDOMIN (MILNACIPRAN HYDROCHLORIDE) [Suspect]
     Indication: MENTAL DISORDER
     Dosage: 75 MG;QD;PO, 50 MG;QD;PO
     Route: 048
     Dates: end: 20091210
  7. TOLEDOMIN (MILNACIPRAN HYDROCHLORIDE) [Suspect]
     Indication: DEPRESSED MOOD
     Dosage: 75 MG;QD;PO, 50 MG;QD;PO
     Route: 048
     Dates: start: 20091211
  8. TOLEDOMIN (MILNACIPRAN HYDROCHLORIDE) [Suspect]
     Indication: MENTAL DISORDER
     Dosage: 75 MG;QD;PO, 50 MG;QD;PO
     Route: 048
     Dates: start: 20091211
  9. MEILAX (ETHYL LOFLAZEPATE) [Suspect]
     Dosage: 2 MG;QD;PO
     Route: 048
     Dates: start: 20100217
  10. ETIZOLAM [Concomitant]
  11. FLUNITRAZEPAM [Concomitant]
  12. VALPROATE SODIUM [Concomitant]

REACTIONS (11)
  - ANXIETY [None]
  - ARRHYTHMIA [None]
  - DRUG INTERACTION [None]
  - FATIGUE [None]
  - INSOMNIA [None]
  - MALAISE [None]
  - MUSCLE RIGIDITY [None]
  - SENSATION OF HEAVINESS [None]
  - SOMATOFORM DISORDER [None]
  - TREMOR [None]
  - VENTRICULAR EXTRASYSTOLES [None]
